FAERS Safety Report 8784746 (Version 7)
Quarter: 2014Q1

REPORT INFORMATION
  Report Type: Report from Study
  Country: JP (occurrence: JP)
  Receive Date: 20120914
  Receipt Date: 20140228
  Transmission Date: 20141002
  Serious: Yes (Life-Threatening, Hospitalization, Other)
  Sender: FDA-Public Use
  Company Number: JP-009507513-2012SP029243

PATIENT
  Age: 70 Year
  Sex: Male
  Weight: 75 kg

DRUGS (12)
  1. PEGINTRON [Suspect]
     Indication: HEPATITIS C
     Dosage: 1.3 ?G/KG, QW
     Route: 058
     Dates: start: 20120221, end: 20120508
  2. REBETOL [Suspect]
     Indication: HEPATITIS C
     Dosage: 800 MG, QD
     Route: 048
     Dates: start: 20120221, end: 20120327
  3. REBETOL [Suspect]
     Dosage: 400 MG, QD
     Route: 048
     Dates: start: 20120328, end: 20120423
  4. REBETOL [Suspect]
     Dosage: 200 MG, QD
     Route: 048
     Dates: start: 20120424, end: 20120513
  5. TELAVIC [Suspect]
     Indication: HEPATITIS C
     Dosage: 750 MG, BID
     Route: 048
     Dates: start: 20120221, end: 20120513
  6. URSO [Concomitant]
     Indication: HEPATITIS C
     Dosage: 600 MG, QD,
     Route: 048
     Dates: end: 20120514
  7. MEVARICH [Concomitant]
     Indication: HYPERLIPIDAEMIA
     Dosage: 10 MG, QD,
     Route: 048
     Dates: end: 20120513
  8. RINDERON-V [Concomitant]
     Indication: OTITIS EXTERNA
     Dosage: UNK UNK, PRN
     Route: 061
  9. RINDERON-V [Concomitant]
     Dosage: AS NEEDED, BID
     Route: 061
     Dates: end: 20120515
  10. LOXOPROFEN SODIUM [Concomitant]
     Indication: PROPHYLAXIS
     Dosage: 60 MG, QD AS NEEDED
     Route: 048
     Dates: start: 20120220, end: 20120318
  11. MUCOSTA [Concomitant]
     Indication: PROPHYLAXIS
     Dosage: 100 MG, QD AS NEEDED
     Route: 048
     Dates: start: 20120220, end: 20120318
  12. MUCOSTA [Concomitant]
     Dosage: UNK UNK, TID
     Route: 048
     Dates: start: 20120523, end: 20120808

REACTIONS (10)
  - Subcutaneous abscess [Recovered/Resolved]
  - Renal impairment [Recovered/Resolved]
  - Sepsis [Recovered/Resolved]
  - Renal failure [Unknown]
  - Disseminated intravascular coagulation [Recovered/Resolved]
  - Pneumonia [Recovering/Resolving]
  - Rash [Recovered/Resolved]
  - Red blood cell count decreased [Recovered/Resolved]
  - Cardiac failure acute [Recovered/Resolved]
  - Haemoglobin decreased [Recovered/Resolved]
